FAERS Safety Report 4525175-5 (Version None)
Quarter: 2004Q4

REPORT INFORMATION
  Report Type: 
  Country: None (occurrence: None)
  Receive Date: 20041117
  Receipt Date: 20040212
  Transmission Date: 20050328
  Serious: Yes (Other)
  Sender: FDA-Public Use
  Company Number: 2004S1000472

PATIENT
  Sex: Male

DRUGS (2)
  1. CLOZAPINE [Suspect]
     Indication: IMPULSE-CONTROL DISORDER
     Dosage: 200MG BID, ORAL
     Route: 048
     Dates: end: 20040212
  2. QUETIAPINE FUMARATE [Concomitant]

REACTIONS (1)
  - NEUTROPENIA [None]
